FAERS Safety Report 18031282 (Version 2)
Quarter: 2020Q3

REPORT INFORMATION
  Report Type: Spontaneous
  Country: JP (occurrence: JP)
  Receive Date: 20200716
  Receipt Date: 20200722
  Transmission Date: 20201103
  Serious: Yes (Hospitalization)
  Sender: FDA-Public Use
  Company Number: NVSJ2020JP006813

PATIENT
  Age: 68 Year
  Sex: Male

DRUGS (3)
  1. LINEZOLID. [Concomitant]
     Active Substance: LINEZOLID
     Indication: POST PROCEDURAL INFECTION
     Dosage: UNK
     Route: 065
  2. RIFAMPICIN [Suspect]
     Active Substance: RIFAMPIN
     Indication: POST PROCEDURAL INFECTION
     Dosage: UNK
     Route: 065
  3. CLINDAMYCIN HYDROCHLORIDE. [Concomitant]
     Active Substance: CLINDAMYCIN HYDROCHLORIDE
     Indication: POST PROCEDURAL INFECTION
     Dosage: UNK
     Route: 065

REACTIONS (5)
  - Coagulation time prolonged [Recovered/Resolved]
  - Factor V deficiency [Unknown]
  - Haemorrhage subcutaneous [Unknown]
  - Platelet count decreased [Unknown]
  - White blood cell count decreased [Unknown]
